FAERS Safety Report 10670399 (Version 1)
Quarter: 2014Q4

REPORT INFORMATION
  Report Type: Spontaneous
  Country: GB (occurrence: None)
  Receive Date: 20141218
  Receipt Date: 20141218
  Transmission Date: 20150529
  Serious: Yes (Other)
  Sender: FDA-Public Use
  Company Number: GB-DEXPHARM-20141030

PATIENT
  Age: 17 Year
  Sex: Female

DRUGS (1)
  1. OMEPRAZOLE. [Suspect]
     Active Substance: OMEPRAZOLE

REACTIONS (3)
  - Psychiatric symptom [None]
  - Hallucination [None]
  - Intentional overdose [None]

NARRATIVE: CASE EVENT DATE: 20140901
